FAERS Safety Report 17989235 (Version 2)
Quarter: 2020Q4

REPORT INFORMATION
  Report Type: Spontaneous
  Country: FR (occurrence: FR)
  Receive Date: 20200707
  Receipt Date: 20201214
  Transmission Date: 20210113
  Serious: Yes (Hospitalization, Other)
  Sender: FDA-Public Use
  Company Number: FR-MYLANLABS-2020M1061657

PATIENT
  Age: 22 Year
  Sex: Female

DRUGS (4)
  1. LAMICTAL [Suspect]
     Active Substance: LAMOTRIGINE
     Indication: BIPOLAR DISORDER
     Dosage: 100 MILLIGRAM, QD
     Route: 048
     Dates: start: 20200428, end: 20200509
  2. FONDAPARINUX [Suspect]
     Active Substance: FONDAPARINUX
     Indication: CIRCULATING ANTICOAGULANT
     Dosage: PREVENTION
     Route: 048
     Dates: end: 20200513
  3. EFFEXOR [Concomitant]
     Active Substance: VENLAFAXINE HYDROCHLORIDE
     Indication: BIPOLAR DISORDER
     Dosage: UNK
  4. TERCIAN                            /00759302/ [Suspect]
     Active Substance: CYAMEMAZINE
     Indication: BIPOLAR DISORDER
     Dosage: 50 MILLIGRAM, QD
     Route: 048
     Dates: start: 20200428, end: 20200513

REACTIONS (3)
  - Lupus-like syndrome [Not Recovered/Not Resolved]
  - Drug reaction with eosinophilia and systemic symptoms [Recovered/Resolved]
  - Haemophagocytic lymphohistiocytosis [Recovered/Resolved]

NARRATIVE: CASE EVENT DATE: 20200509
